FAERS Safety Report 13747246 (Version 1)
Quarter: 2017Q3

REPORT INFORMATION
  Report Type: Spontaneous
  Country: DE (occurrence: DE)
  Receive Date: 20170712
  Receipt Date: 20170712
  Transmission Date: 20171127
  Serious: Yes (Other)
  Sender: FDA-Public Use
  Company Number: ALCN2017DE004290

PATIENT
  Sex: Female

DRUGS (1)
  1. DEXASINE SE [Suspect]
     Active Substance: DEXAMETHASONE SODIUM PHOSPHATE
     Indication: EYE INFLAMMATION
     Dosage: 1 GTT, 5QD
     Route: 047
     Dates: start: 201705, end: 201705

REACTIONS (2)
  - Posterior capsule opacification [Not Recovered/Not Resolved]
  - Vision blurred [Not Recovered/Not Resolved]

NARRATIVE: CASE EVENT DATE: 201705
